FAERS Safety Report 26001822 (Version 1)
Quarter: 2025Q4

REPORT INFORMATION
  Report Type: Spontaneous
  Country: JP (occurrence: JP)
  Receive Date: 20251105
  Receipt Date: 20251105
  Transmission Date: 20260118
  Serious: Yes (Hospitalization, Other)
  Sender: GENUS LIFESCIENCES
  Company Number: JP-Genus_Lifesciences-USA-ALL0580202500142

PATIENT
  Age: 12 Month
  Sex: Female

DRUGS (3)
  1. PHENOBARBITAL [Suspect]
     Active Substance: PHENOBARBITAL
     Indication: Sedation
     Dosage: UNKNOWN
     Route: 048
     Dates: start: 2025, end: 2025
  2. AMOXICILLIN [Suspect]
     Active Substance: AMOXICILLIN
     Indication: Product used for unknown indication
     Dosage: UNKNOWN
     Dates: start: 2025, end: 2025
  3. AMPICILLIN TRIHYDRATE [Concomitant]
     Active Substance: AMPICILLIN TRIHYDRATE
     Indication: Product used for unknown indication
     Dosage: UNKNOWN
     Dates: start: 2025, end: 2025

REACTIONS (1)
  - Drug reaction with eosinophilia and systemic symptoms [Recovered/Resolved]

NARRATIVE: CASE EVENT DATE: 20250101
